FAERS Safety Report 8078472-3 (Version None)
Quarter: 2012Q1

REPORT INFORMATION
  Report Type: 
  Country: None (occurrence: None)
  Receive Date: 20120123
  Receipt Date: 20120117
  Transmission Date: 20120608
  Serious: Yes (Hospitalization)
  Sender: FDA-Public Use
  Company Number: IMP_05715_2012

PATIENT
  Age: 61 Year
  Sex: Female

DRUGS (5)
  1. DICLOFENAC SODIUM [Suspect]
     Indication: JOINT INJURY
     Dosage: 75 MG QD ORAL
     Route: 048
  2. METFORMIN HCL [Suspect]
     Indication: DIABETES MELLITUS
     Dosage: 1700 MG QD
  3. GLIMEPIRIDE [Concomitant]
  4. HYDROCHLOROTHIAZIDE [Concomitant]
  5. ENALAPRIL MALEATE [Concomitant]

REACTIONS (14)
  - LACTIC ACIDOSIS [None]
  - RENAL IMPAIRMENT [None]
  - NAUSEA [None]
  - DECREASED APPETITE [None]
  - KUSSMAUL RESPIRATION [None]
  - DISORIENTATION [None]
  - METABOLIC ACIDOSIS [None]
  - ABDOMINAL PAIN [None]
  - SOMNOLENCE [None]
  - BLOOD PRESSURE DECREASED [None]
  - HAEMODIALYSIS [None]
  - OLIGURIA [None]
  - GENERAL PHYSICAL HEALTH DETERIORATION [None]
  - ABDOMINAL DISCOMFORT [None]
